FAERS Safety Report 20604195 (Version 3)
Quarter: 2022Q2

REPORT INFORMATION
  Report Type: Spontaneous
  Country: US (occurrence: US)
  Receive Date: 20220316
  Receipt Date: 20220425
  Transmission Date: 20220720
  Serious: Yes (Other)
  Sender: FDA-Public Use
  Company Number: US-SA-SAC20220314000607

PATIENT
  Age: 51 Year
  Sex: Female

DRUGS (1)
  1. ZANTAC [Suspect]
     Active Substance: RANITIDINE HYDROCHLORIDE
     Indication: Dyspepsia
     Dosage: 150 MG FREQUENCY: OTHER
     Route: 065
     Dates: start: 201807, end: 202011

REACTIONS (3)
  - Colorectal cancer stage IV [Unknown]
  - Hepatic cancer stage IV [Not Recovered/Not Resolved]
  - Gastric cancer stage IV [Not Recovered/Not Resolved]

NARRATIVE: CASE EVENT DATE: 20190117
